FAERS Safety Report 5720741-3 (Version None)
Quarter: 2008Q2

REPORT INFORMATION
  Report Type: 
  Country: None (occurrence: None)
  Receive Date: 20080429
  Receipt Date: 20080422
  Transmission Date: 20081010
  Serious: Yes (Hospitalization)
  Sender: FDA-Public Use
  Company Number: PHEH2008US03877

PATIENT
  Age: 72 Year
  Sex: Male
  Weight: 81.632 kg

DRUGS (14)
  1. RECLAST [Suspect]
     Indication: OSTEOPOROSIS
     Dosage: 5 MG ONCE YEARLY
     Route: 042
     Dates: start: 20080411, end: 20080411
  2. ASPIRIN [Concomitant]
     Dosage: 81 MG, QD
  3. ACCOLATE [Concomitant]
     Dosage: 20 MG, BID
  4. NORVASC [Concomitant]
     Dosage: 2.5 MG, QD
  5. PLAVIX [Concomitant]
     Dosage: 75 MG, QD
  6. NEXIUM [Concomitant]
     Dosage: 40 MG, BID
  7. DUONEB [Concomitant]
     Dosage: UNK, QD
  8. CARAFATE [Concomitant]
  9. NASONEX [Concomitant]
     Dosage: 1 SPRAY QNOSTRIL PRN
  10. SYMBICORT [Concomitant]
     Dosage: 2 PUFFS BID
  11. NORCO [Concomitant]
     Dosage: Q4 PRN
  12. CALCIUM [Concomitant]
     Dosage: 1-2 TABS QD
  13. SENOKOT /USA/ [Concomitant]
     Dosage: 2 TABS QD
  14. DULCOLAX [Concomitant]
     Indication: CONSTIPATION
     Dosage: 10 MG, PRN
     Route: 054

REACTIONS (4)
  - CHEST PAIN [None]
  - GAIT DISTURBANCE [None]
  - INFLUENZA LIKE ILLNESS [None]
  - MYALGIA [None]
